FAERS Safety Report 10519896 (Version 4)
Quarter: 2015Q1

REPORT INFORMATION
  Report Type: Spontaneous
  Country: US (occurrence: US)
  Receive Date: 20141015
  Receipt Date: 20150130
  Transmission Date: 20150720
  Serious: Yes (Other)
  Sender: FDA-Public Use
  Company Number: US-BAYER-2014-151914

PATIENT
  Age: 67 Year
  Sex: Female

DRUGS (3)
  1. ESTRACE [Concomitant]
     Active Substance: ESTRADIOL
  2. CLIMARA PRO [Suspect]
     Active Substance: ESTRADIOL\LEVONORGESTREL
     Indication: MENOPAUSE
     Dosage: UNK
     Route: 062
     Dates: start: 2007
  3. DIVIGEL [Concomitant]
     Active Substance: ESTRADIOL

REACTIONS (22)
  - Device defective [None]
  - Menopausal symptoms [None]
  - Back pain [None]
  - Cervical polyp [None]
  - Bladder prolapse [None]
  - Insomnia [None]
  - Paraesthesia [None]
  - Weight increased [None]
  - Uterine cervix stenosis [None]
  - Muscle spasms [None]
  - Night sweats [None]
  - Paraesthesia [Recovering/Resolving]
  - Product adhesion issue [None]
  - Hot flush [None]
  - Arthralgia [None]
  - Muscle spasms [Recovering/Resolving]
  - Irritability [None]
  - Panic attack [None]
  - Drug prescribing error [None]
  - Initial insomnia [Recovering/Resolving]
  - Restlessness [Recovering/Resolving]
  - Feeling abnormal [None]

NARRATIVE: CASE EVENT DATE: 2008
